FAERS Safety Report 11647297 (Version 5)
Quarter: 2017Q1

REPORT INFORMATION
  Report Type: Report from Study
  Country: US (occurrence: US)
  Receive Date: 20151021
  Receipt Date: 20170201
  Transmission Date: 20170428
  Serious: No
  Sender: FDA-Public Use
  Company Number: PHHY2015US003125

PATIENT
  Age: 35 Year
  Sex: Female

DRUGS (3)
  1. ACTIGALL [Concomitant]
     Active Substance: URSODIOL
     Indication: GASTRIC BYPASS
     Dosage: UNK
     Route: 065
     Dates: start: 20141014, end: 20141212
  2. CARAFATE [Concomitant]
     Active Substance: SUCRALFATE
     Indication: GASTRIC BYPASS
     Dosage: UNK
     Route: 065
     Dates: start: 20141014, end: 20141212
  3. GILENYA [Suspect]
     Active Substance: FINGOLIMOD HYDROCHLORIDE
     Indication: MULTIPLE SCLEROSIS
     Dosage: UNK
     Route: 048

REACTIONS (6)
  - Vitamin D deficiency [Not Recovered/Not Resolved]
  - Radiculopathy [Not Recovered/Not Resolved]
  - Protein total increased [Unknown]
  - Paraesthesia [Not Recovered/Not Resolved]
  - Alanine aminotransferase increased [Unknown]
  - Sinus bradycardia [Recovered/Resolved]

NARRATIVE: CASE EVENT DATE: 20141014
